FAERS Safety Report 9203331 (Version 2)
Quarter: 2014Q1

REPORT INFORMATION
  Report Type: Spontaneous
  Country: US (occurrence: US)
  Receive Date: 20130402
  Receipt Date: 20140121
  Transmission Date: 20141002
  Serious: Yes (Other)
  Sender: FDA-Public Use
  Company Number: US-BAYER-2013-039130

PATIENT
  Age: 33 Year
  Sex: Female

DRUGS (10)
  1. YAZ [Suspect]
     Indication: CONTRACEPTION
  2. YASMIN [Suspect]
  3. ATIVAN [Concomitant]
     Route: 048
  4. AMBIEN [Concomitant]
     Route: 048
  5. ROXICET [Concomitant]
     Dosage: 5/325
     Route: 048
  6. HYDROCODONE/ACETAMINOPHEN [Concomitant]
     Dosage: 7.5/500MG
     Route: 048
  7. PROMETHAZINE [Concomitant]
     Dosage: 25 MG, UNK
     Route: 048
  8. TERAZOL 7 [Concomitant]
     Route: 067
  9. LEVOXYL [Concomitant]
     Route: 048
  10. NEXIUM [Concomitant]
     Route: 048

REACTIONS (5)
  - Cholecystectomy [None]
  - Cholecystitis chronic [None]
  - Injury [None]
  - Pain [None]
  - Emotional distress [None]
